FAERS Safety Report 9735427 (Version 2)
Quarter: 2015Q3

REPORT INFORMATION
  Report Type: Spontaneous
  Country: US (occurrence: US)
  Receive Date: 20131206
  Receipt Date: 20150804
  Transmission Date: 20151125
  Serious: No
  Sender: FDA-Public Use
  Company Number: US-GILEAD-2009-0022757

PATIENT
  Age: 77 Year
  Sex: Female
  Weight: 59.42 kg

DRUGS (13)
  1. REVATIO [Concomitant]
     Active Substance: SILDENAFIL CITRATE
  2. LASIX [Concomitant]
     Active Substance: FUROSEMIDE
  3. DAILY IRON [Concomitant]
  4. GLIPIZIDE. [Concomitant]
     Active Substance: GLIPIZIDE
  5. CENTRUM [Concomitant]
     Active Substance: VITAMINS
  6. LANTUS [Concomitant]
     Active Substance: INSULIN GLARGINE
  7. ZOCOR [Concomitant]
     Active Substance: SIMVASTATIN
  8. OMEPRAZOLE. [Concomitant]
     Active Substance: OMEPRAZOLE
  9. DIOVAN [Concomitant]
     Active Substance: VALSARTAN
  10. LOPRESSOR [Concomitant]
     Active Substance: METOPROLOL TARTRATE
  11. LETAIRIS [Suspect]
     Active Substance: AMBRISENTAN
     Indication: PULMONARY ARTERIAL HYPERTENSION
     Dates: start: 20090408
  12. TYLENOL [Concomitant]
     Active Substance: ACETAMINOPHEN
  13. COUMADIN [Concomitant]
     Active Substance: WARFARIN SODIUM

REACTIONS (2)
  - Nasal congestion [Unknown]
  - Peripheral swelling [Unknown]
